FAERS Safety Report 19199739 (Version 1)
Quarter: 2021Q2

REPORT INFORMATION
  Report Type: Report from Study
  Country: IT (occurrence: IT)
  Receive Date: 20210430
  Receipt Date: 20210430
  Transmission Date: 20210717
  Serious: Yes (Other)
  Sender: FDA-Public Use
  Company Number: IT-TEVA-2021-IT-1905742

PATIENT
  Age: 73 Year
  Sex: Female

DRUGS (3)
  1. DOBETIN [Concomitant]
  2. ENALAPRIL [Suspect]
     Active Substance: ENALAPRIL
     Indication: HYPERTENSION
     Dosage: 20 MG
     Route: 048
     Dates: start: 20200101, end: 20210204
  3. HYDROCHLOROTHIAZIDE. [Suspect]
     Active Substance: HYDROCHLOROTHIAZIDE
     Indication: HYPERTENSION
     Dosage: 12.5 MG
     Route: 048
     Dates: start: 20200101, end: 20210204

REACTIONS (1)
  - Electrolyte imbalance [Recovering/Resolving]

NARRATIVE: CASE EVENT DATE: 20210204
